FAERS Safety Report 17132722 (Version 1)
Quarter: 2019Q4

REPORT INFORMATION
  Report Type: Spontaneous
  Country: DE (occurrence: DE)
  Receive Date: 20191210
  Receipt Date: 20191210
  Transmission Date: 20200122
  Serious: Yes (Hospitalization, Other)
  Sender: FDA-Public Use
  Company Number: DE-DRREDDYS-USA/GER/17/0094966

PATIENT
  Age: 54 Year
  Sex: Female

DRUGS (5)
  1. DICLOFENAC [Concomitant]
     Active Substance: DICLOFENAC
     Indication: PRODUCT USED FOR UNKNOWN INDICATION
  2. PANTOPRAZOLE SODIUM DR TABLETS 20MG AND 40MG [Suspect]
     Active Substance: PANTOPRAZOLE SODIUM
     Indication: GASTROOESOPHAGEAL REFLUX DISEASE
     Route: 065
  3. OMEPRAZOLE DELAYED-RELEASE TABLETS, 20 MG [OTC] [Suspect]
     Active Substance: OMEPRAZOLE
     Indication: GASTROOESOPHAGEAL REFLUX DISEASE
     Dosage: TOOK ONE TABLET OF OMEPRAZOLE
     Route: 048
     Dates: start: 2014
  4. OMEPRAZOLE DELAYED-RELEASE TABLETS, 20 MG [OTC] [Suspect]
     Active Substance: OMEPRAZOLE
     Indication: BRONCHITIS
     Route: 048
     Dates: start: 201402
  5. AZITHROMYCIN ANHYDROUS. [Concomitant]
     Active Substance: AZITHROMYCIN ANHYDROUS
     Indication: BRONCHITIS
     Dates: start: 201402

REACTIONS (6)
  - Abdominal pain [Unknown]
  - Vomiting [Unknown]
  - Flushing [Unknown]
  - Type I hypersensitivity [Unknown]
  - Diarrhoea [Unknown]
  - Hypotension [Unknown]

NARRATIVE: CASE EVENT DATE: 201402
